FAERS Safety Report 9317967 (Version 1)
Quarter: 2013Q2

REPORT INFORMATION
  Report Type: Spontaneous
  Country: US (occurrence: US)
  Receive Date: 20130530
  Receipt Date: 20130530
  Transmission Date: 20140414
  Serious: No
  Sender: FDA-Public Use
  Company Number: US-NOVEN-12US005444

PATIENT
  Age: 5 Year
  Sex: Male

DRUGS (2)
  1. DAYTRANA [Suspect]
     Indication: AUTISM
     Dosage: 10 MG
     Route: 062
     Dates: start: 201209
  2. DAYTRANA [Suspect]
     Dosage: 10 MG PATCH CUT TO 5 MG, UNK

REACTIONS (9)
  - Disturbance in attention [Recovering/Resolving]
  - Abnormal behaviour [Not Recovered/Not Resolved]
  - Depressed mood [Not Recovered/Not Resolved]
  - Aggression [Recovering/Resolving]
  - Irritability [Not Recovered/Not Resolved]
  - Off label use [Not Recovered/Not Resolved]
  - Incorrect drug administration duration [Recovered/Resolved]
  - Drug prescribing error [Not Recovered/Not Resolved]
  - Product quality issue [Not Recovered/Not Resolved]
